FAERS Safety Report 8279741 (Version 2)
Quarter: 2013Q2

REPORT INFORMATION
  Report Type: Spontaneous
  Country: US (occurrence: None)
  Receive Date: 20111121
  Receipt Date: 20120820
  Transmission Date: 20140414
  Serious: No
  Sender: FDA-Public Use
  Company Number: 1000024685

PATIENT
  Age: 67 Year
  Sex: Female

DRUGS (3)
  1. VIIBRYD [Suspect]
     Indication: DEPRESSION
     Dosage: SEE IMAGE
     Route: 048
     Dates: start: 201109, end: 2011
  2. LAMICTAL [Concomitant]
  3. KLONOPIN [Concomitant]

REACTIONS (13)
  - INSOMNIA [None]
  - VISION BLURRED [None]
  - DRY MOUTH [None]
  - HEART RATE INCREASED [None]
  - NAUSEA [None]
  - VOMITING [None]
  - DIARRHOEA [None]
  - DIZZINESS [None]
  - Lacrimation increased [None]
  - Chest discomfort [None]
  - Dry eye [None]
  - Paraesthesia [None]
  - Hyperhidrosis [None]
